FAERS Safety Report 15399958 (Version 1)
Quarter: 2018Q3

REPORT INFORMATION
  Report Type: Report from Study
  Country: None (occurrence: BR)
  Receive Date: 20180919
  Receipt Date: 20180919
  Transmission Date: 20181010
  Serious: Yes (Hospitalization, Other)
  Sender: FDA-Public Use
  Company Number: BR-ABBVIE-18K-020-2212730-00

PATIENT
  Sex: Male
  Weight: 76 kg

DRUGS (11)
  1. HUMIRA [Suspect]
     Active Substance: ADALIMUMAB
     Dosage: WEEK 1?INDUCTION DOSE, LOADING DOSE
     Route: 058
     Dates: start: 201702, end: 201702
  2. FLAGYL [Concomitant]
     Active Substance: METRONIDAZOLE\METRONIDAZOLE HYDROCHLORIDE
     Indication: ANAL FISTULA
  3. HUMIRA [Suspect]
     Active Substance: ADALIMUMAB
     Dosage: MAINTENANCE DOSE
     Route: 058
     Dates: start: 2017
  4. DEOCIL [Concomitant]
     Active Substance: KETOROLAC TROMETHAMINE
     Indication: ANAL FISTULA
  5. GLUCERNA [Concomitant]
     Active Substance: AMINO ACIDS\DEXTROSE\ELECTROLYTES NOS\SOYBEAN OIL\VITAMINS
     Indication: CROHN^S DISEASE
  6. MESACOL [Concomitant]
     Active Substance: MESALAMINE
     Indication: CROHN^S DISEASE
  7. GLUCERNA [Concomitant]
     Active Substance: AMINO ACIDS\DEXTROSE\ELECTROLYTES NOS\SOYBEAN OIL\VITAMINS
     Indication: SUPPLEMENTATION THERAPY
  8. DIAMICRON [Concomitant]
     Active Substance: GLICLAZIDE
     Indication: DIABETES MELLITUS
  9. AZATHIOPRINE. [Concomitant]
     Active Substance: AZATHIOPRINE
     Indication: CROHN^S DISEASE
  10. HUMIRA [Suspect]
     Active Substance: ADALIMUMAB
     Indication: CROHN^S DISEASE
     Dosage: WEEK 0?INDUCTION DOSE, LOADING DOSE
     Route: 058
     Dates: start: 20170131, end: 20170131
  11. NESINA [Concomitant]
     Active Substance: ALOGLIPTIN BENZOATE
     Indication: DIABETES MELLITUS

REACTIONS (9)
  - Investigation [Unknown]
  - Weight decreased [Recovered/Resolved]
  - Tuberculosis [Recovering/Resolving]
  - Drug effect delayed [Unknown]
  - Pneumonia [Recovering/Resolving]
  - Ascites [Recovering/Resolving]
  - Emotional disorder [Unknown]
  - Weight decreased [Recovered/Resolved]
  - Pneumonia [Recovered/Resolved]

NARRATIVE: CASE EVENT DATE: 2017
